FAERS Safety Report 8967192 (Version 2)
Quarter: 2013Q1

REPORT INFORMATION
  Report Type: Spontaneous
  Country: IT (occurrence: IT)
  Receive Date: 20121214
  Receipt Date: 20130110
  Transmission Date: 20140127
  Serious: Yes (Life-Threatening)
  Sender: FDA-Public Use
  Company Number: IT-GENZYME-THYM-1003542

PATIENT
  Age: 42 Year
  Sex: Female

DRUGS (1)
  1. THYMOGLOBULINE [Suspect]
     Indication: PROPHYLAXIS AGAINST TRANSPLANT REJECTION
     Dosage: 290 MG, QD
     Route: 042
     Dates: start: 20121104, end: 20121104

REACTIONS (1)
  - Acute respiratory failure [Recovered/Resolved]
